FAERS Safety Report 9041998 (Version 1)
Quarter: 2013Q1

REPORT INFORMATION
  Report Type: Report from Study
  Country: US (occurrence: US)
  Receive Date: 20130129
  Receipt Date: 20130129
  Transmission Date: 20140127
  Serious: No
  Sender: FDA-Public Use
  Company Number: US-ABBOTT-12P-163-0905393-00

PATIENT
  Sex: 0
  Weight: 158.9 kg

DRUGS (12)
  1. HUMIRA 40 MG/0.8 ML PEN [Suspect]
     Indication: PSORIASIS
     Dosage: ON DAY ONE
     Dates: start: 201111, end: 201111
  2. HUMIRA 40 MG/0.8 ML PEN [Suspect]
     Indication: PSORIATIC ARTHROPATHY
     Dosage: ON DAY EIGHT
     Dates: end: 201202
  3. LISINOPRIL [Concomitant]
     Indication: CARDIOMYOPATHY
  4. LISINOPRIL [Concomitant]
     Indication: CARDIAC FAILURE CONGESTIVE
  5. COREG [Concomitant]
     Indication: CARDIOVASCULAR EVENT PROPHYLAXIS
  6. ULTRAM [Concomitant]
     Indication: ANTIINFLAMMATORY THERAPY
  7. SIMVASTATIN [Concomitant]
     Indication: BLOOD CHOLESTEROL INCREASED
  8. LEVOTHYROXINE [Concomitant]
     Indication: HYPOTHYROIDISM
  9. NOVOLOG N [Concomitant]
     Indication: DIABETES MELLITUS
  10. NOVOLOG R [Concomitant]
     Indication: DIABETES MELLITUS
  11. GLIMEPIRIDE [Concomitant]
     Indication: DIABETES MELLITUS
  12. ASPIRIN [Concomitant]
     Indication: PRODUCT USED FOR UNKNOWN INDICATION

REACTIONS (6)
  - Incorrect route of drug administration [Not Recovered/Not Resolved]
  - Incorrect drug administration duration [Not Recovered/Not Resolved]
  - Injection site pain [Not Recovered/Not Resolved]
  - Pain [Not Recovered/Not Resolved]
  - Incorrect dose administered [Not Recovered/Not Resolved]
  - Device malfunction [Not Recovered/Not Resolved]
